FAERS Safety Report 6336798-5 (Version None)
Quarter: 2009Q3

REPORT INFORMATION
  Report Type: 
  Country: None (occurrence: None)
  Receive Date: 20090831
  Receipt Date: 20090831
  Transmission Date: 20100115
  Serious: No
  Sender: FDA-Public Use
  Company Number: None

PATIENT
  Age: 69 Year
  Sex: Female
  Weight: 63.05 kg

DRUGS (1)
  1. NITROFURANTOIN [Suspect]
     Indication: URINARY TRACT INFECTION
     Dosage: 100MG TWICE DAILEY PO
     Route: 048
     Dates: start: 20090820, end: 20090828

REACTIONS (4)
  - CHILLS [None]
  - DIZZINESS [None]
  - HEADACHE [None]
  - TREMOR [None]
